FAERS Safety Report 19288546 (Version 2)
Quarter: 2021Q2

REPORT INFORMATION
  Report Type: Spontaneous
  Country: US (occurrence: US)
  Receive Date: 20210522
  Receipt Date: 20210621
  Transmission Date: 20210717
  Serious: Yes (Hospitalization, Other)
  Sender: FDA-Public Use
  Company Number: US-ACCORD-226056

PATIENT
  Age: 56 Year
  Sex: Female

DRUGS (4)
  1. PACLITAXEL. [Concomitant]
     Active Substance: PACLITAXEL
     Indication: ADENOCARCINOMA PANCREAS
     Dosage: GIVEN ON DAYS 1, 8 AND 15
     Dates: start: 2019
  2. PACLITAXEL. [Concomitant]
     Active Substance: PACLITAXEL
     Indication: ADENOCARCINOMA PANCREAS
     Dosage: 21? DAY CYCLES OF TREATMENT
     Dates: start: 201901
  3. PACLITAXEL. [Concomitant]
     Active Substance: PACLITAXEL
     Indication: ADENOCARCINOMA PANCREAS
     Dosage: GIVEN ON DAYS 1, 8 AND 15, 21 DAY CYCLES (1500 MG/M2)
     Dates: start: 2019
  4. GEMCITABINE/GEMCITABINE HYDROCHLORIDE [Suspect]
     Active Substance: GEMCITABINE\GEMCITABINE HYDROCHLORIDE
     Indication: ADENOCARCINOMA PANCREAS
     Dosage: 21? DAY CYCLES OF TREATMENT, GIVEN ON DAYS 1, 8 AND 15 (3000 MG/M2)
     Dates: start: 201901

REACTIONS (2)
  - Myositis [Recovered/Resolved]
  - Recall phenomenon [Recovered/Resolved]

NARRATIVE: CASE EVENT DATE: 201904
